FAERS Safety Report 25007569 (Version 1)
Quarter: 2025Q1

REPORT INFORMATION
  Report Type: Report from Study
  Country: US (occurrence: US)
  Receive Date: 20250225
  Receipt Date: 20250225
  Transmission Date: 20250409
  Serious: Yes (Hospitalization, Other)
  Sender: ACADIA PHARMACEUTICALS
  Company Number: US-ACADIA PHARMACEUTICALS INC.-ACA-2025-PIM-001773

PATIENT
  Sex: Male

DRUGS (15)
  1. NUPLAZID [Suspect]
     Active Substance: PIMAVANSERIN TARTRATE
     Indication: Parkinson^s disease
     Dosage: 34 MILLIGRAM, QD
     Route: 048
  2. NUPLAZID [Suspect]
     Active Substance: PIMAVANSERIN TARTRATE
     Indication: Hallucination
  3. NUPLAZID [Suspect]
     Active Substance: PIMAVANSERIN TARTRATE
     Indication: Delusion
  4. BETHANECHOL [Concomitant]
     Active Substance: BETHANECHOL
  5. CLONAZEPAM [Concomitant]
     Active Substance: CLONAZEPAM
  6. COENZYME Q10 [Concomitant]
     Active Substance: DIETARY SUPPLEMENT\UBIDECARENONE
  7. FINASTERIDE [Concomitant]
     Active Substance: FINASTERIDE
  8. MAGNESIUM [Concomitant]
     Active Substance: MAGNESIUM
  9. MIDODRINE HYDROCHLORIDE [Concomitant]
     Active Substance: MIDODRINE HYDROCHLORIDE
  10. PANTOPRAZOLE [Concomitant]
     Active Substance: PANTOPRAZOLE
  11. VITAMIN B12 [Concomitant]
     Active Substance: CYANOCOBALAMIN
  12. CHOLECALCIFEROL [Concomitant]
     Active Substance: CHOLECALCIFEROL
  13. NYSTATIN [Concomitant]
     Active Substance: NYSTATIN
  14. ATORVASTATIN [Concomitant]
     Active Substance: ATORVASTATIN
  15. CARBIDOPA LEVODOPA [Concomitant]
     Active Substance: CARBIDOPA\LEVODOPA

REACTIONS (16)
  - Psychotic disorder [Unknown]
  - Paranoia [Unknown]
  - Orthostatic hypotension [Unknown]
  - Syncope [Unknown]
  - Dementia [Unknown]
  - Delusion [Unknown]
  - Hallucinations, mixed [Unknown]
  - Agitation [Unknown]
  - Urinary tract infection [Unknown]
  - Prostatomegaly [Unknown]
  - Dysphagia [Unknown]
  - Feeding disorder [Unknown]
  - Panic attack [Unknown]
  - Anxiety [Unknown]
  - Decreased appetite [Unknown]
  - Product dose omission issue [Unknown]
